FAERS Safety Report 17573050 (Version 2)
Quarter: 2020Q1

REPORT INFORMATION
  Report Type: Spontaneous
  Country: IT (occurrence: IT)
  Receive Date: 20200323
  Receipt Date: 20200331
  Transmission Date: 20200409
  Serious: Yes (Death, Other)
  Sender: FDA-Public Use
  Company Number: IT-MYLANLABS-2020M1029308

PATIENT
  Age: 40 Year
  Sex: Male

DRUGS (22)
  1. CLOZAPINE. [Suspect]
     Active Substance: CLOZAPINE
     Indication: MANIA
     Dosage: DAY 3 AND 5 :  100 MG 3 TIMES DAILY
     Route: 048
  2. PROMAZINE [Suspect]
     Active Substance: PROMAZINE
     Indication: PSYCHOMOTOR HYPERACTIVITY
     Dosage: DAY 5
     Route: 048
  3. CLOZAPINE. [Suspect]
     Active Substance: CLOZAPINE
     Dosage: BEFORE HOSPITALIZATION
     Route: 048
  4. HALOPERIDOL. [Suspect]
     Active Substance: HALOPERIDOL
     Indication: PSYCHOMOTOR HYPERACTIVITY
     Dosage: DAY 5
     Route: 048
  5. CHLORPHENIRAMINE                   /00072501/ [Concomitant]
     Active Substance: CHLORPHENIRAMINE
     Indication: PSYCHOMOTOR HYPERACTIVITY
     Dosage: DAY 1
     Route: 042
  6. DELORAZEPAM [Suspect]
     Active Substance: DELORAZEPAM
     Indication: PSYCHOMOTOR HYPERACTIVITY
     Dosage: DAY 1
     Route: 042
  7. DELORAZEPAM [Suspect]
     Active Substance: DELORAZEPAM
     Dosage: DAY 2 AT NIGHT
     Route: 030
  8. CLOTIAPINE [Suspect]
     Active Substance: CLOTHIAPINE
     Dosage: DAY 3
     Route: 030
  9. CHLORPROMAZINE. [Concomitant]
     Active Substance: CHLORPROMAZINE
     Dosage: DAY 1
     Route: 042
  10. DELORAZEPAM [Suspect]
     Active Substance: DELORAZEPAM
     Indication: PSYCHOMOTOR HYPERACTIVITY
     Dosage: DAY 3 TO DAY 5
     Route: 048
  11. CLOZAPINE. [Suspect]
     Active Substance: CLOZAPINE
     Dosage: DAY 2
     Route: 048
  12. MIDAZOLAM. [Suspect]
     Active Substance: MIDAZOLAM
     Indication: PSYCHOMOTOR HYPERACTIVITY
     Dosage: DAY 1 AT 1.00 PM, 5 MG AT NIGHT
     Route: 042
  13. VALPROATE [Suspect]
     Active Substance: VALPROIC ACID
     Indication: INSOMNIA
     Dosage: DAY 1
     Route: 048
  14. PROMAZINE [Suspect]
     Active Substance: PROMAZINE
     Dosage: DAY 3 AND 4
     Route: 048
  15. CLOTIAPINE [Suspect]
     Active Substance: CLOTHIAPINE
     Indication: PSYCHOMOTOR HYPERACTIVITY
     Dosage: AT NIGHT, DAY 1
     Route: 030
  16. HALOPERIDOL. [Suspect]
     Active Substance: HALOPERIDOL
     Indication: PSYCHOMOTOR HYPERACTIVITY
     Dosage: DAY 1
     Route: 042
  17. VALPROATE [Suspect]
     Active Substance: VALPROIC ACID
     Indication: PSYCHOMOTOR HYPERACTIVITY
     Dosage: DAY 3 TO DAY 5 : 1500 MG DAILY
     Route: 048
  18. HALOPERIDOL. [Suspect]
     Active Substance: HALOPERIDOL
     Dosage: DAY 4
     Route: 048
  19. VALPROATE [Suspect]
     Active Substance: VALPROIC ACID
     Dosage: DAY 2
     Route: 048
  20. CHLORPROMAZINE. [Concomitant]
     Active Substance: CHLORPROMAZINE
     Indication: PSYCHOMOTOR HYPERACTIVITY
     Dosage: DAY 2 AT NIGHT
     Route: 030
  21. CLOZAPINE. [Suspect]
     Active Substance: CLOZAPINE
     Indication: PSYCHOMOTOR HYPERACTIVITY
     Dosage: DAY 4
     Route: 048
  22. CLOTIAPINE [Suspect]
     Active Substance: CLOTHIAPINE
     Indication: INSOMNIA
     Dosage: DAY 2
     Route: 030

REACTIONS (3)
  - Syncope [Unknown]
  - Sudden death [Fatal]
  - Drug ineffective [Unknown]
